FAERS Safety Report 25409520 (Version 1)
Quarter: 2025Q2

REPORT INFORMATION
  Report Type: Spontaneous
  Country: US (occurrence: US)
  Receive Date: 20250607
  Receipt Date: 20250607
  Transmission Date: 20250717
  Serious: No
  Sender: BRAEBURN PHARMACEUTICALS
  Company Number: US-BRAEBURN PHARMACEUTICALS-US-BRA-25-000304

PATIENT

DRUGS (3)
  1. BRIXADI [Suspect]
     Active Substance: BUPRENORPHINE
     Indication: Drug use disorder
     Dosage: 64 MILLIGRAM, MONTHLY
     Route: 058
     Dates: start: 20250325, end: 20250325
  2. BRIXADI [Suspect]
     Active Substance: BUPRENORPHINE
     Indication: Pain management
     Dosage: 96 MILLIGRAM, MONTHLY
     Route: 030
     Dates: start: 20250512
  3. SUBOXONE [Concomitant]
     Active Substance: BUPRENORPHINE HYDROCHLORIDE\NALOXONE HYDROCHLORIDE
     Indication: Product used for unknown indication
     Dosage: 4 MILLIGRAM, QD
     Route: 060
     Dates: start: 2025

REACTIONS (8)
  - Euphoric mood [Recovered/Resolved]
  - Glassy eyes [Recovered/Resolved]
  - Sedation [Recovered/Resolved]
  - Drug withdrawal syndrome [Recovered/Resolved]
  - Injection site pain [Recovered/Resolved]
  - Therapeutic response decreased [Unknown]
  - Incorrect route of product administration [Unknown]
  - Product dose omission issue [Unknown]

NARRATIVE: CASE EVENT DATE: 20250101
